FAERS Safety Report 5385046-1 (Version None)
Quarter: 2007Q3

REPORT INFORMATION
  Report Type: 
  Country: None (occurrence: None)
  Receive Date: 20070712
  Receipt Date: 20070702
  Transmission Date: 20080115
  Serious: Yes (Other)
  Sender: FDA-Public Use
  Company Number: PHBS2007IT11345

PATIENT
  Age: 69 Year
  Sex: Male

DRUGS (6)
  1. AREDIA [Suspect]
     Indication: METASTASES TO BONE
     Dosage: 90 MG, CYCLIC
     Route: 042
     Dates: start: 20010901, end: 20021231
  2. VELCADE [Concomitant]
     Indication: MULTIPLE MYELOMA
     Dosage: 2.3 MG, UNK
     Route: 042
  3. NAVOBAN [Concomitant]
     Route: 065
  4. ARANESP [Concomitant]
  5. FLEBOCORTID [Concomitant]
  6. ZOMETA [Suspect]
     Indication: METASTASES TO BONE
     Dosage: 4 MG, CYCLIC
     Route: 042
     Dates: start: 20030101, end: 20060731

REACTIONS (2)
  - BONE DISORDER [None]
  - OSTEONECROSIS [None]
